FAERS Safety Report 9323807 (Version 2)
Quarter: 2013Q2

REPORT INFORMATION
  Report Type: Spontaneous
  Country: US (occurrence: US)
  Receive Date: 20130603
  Receipt Date: 20130607
  Transmission Date: 20140414
  Serious: Yes (Other)
  Sender: FDA-Public Use
  Company Number: US-PFIZER INC-2013166413

PATIENT
  Age: 73 Year
  Sex: Female
  Weight: 86.17 kg

DRUGS (6)
  1. NORVASC [Suspect]
     Indication: HYPERTENSION
     Dosage: 5 MG, 1X/DAY
     Route: 048
  2. PROTONIX [Suspect]
     Indication: GASTRIC DISORDER
     Dosage: 40 MG, 1X/DAY
     Route: 048
  3. DETROL LA [Suspect]
     Indication: HYPERTONIC BLADDER
     Dosage: 4 MG, 1X/DAY
     Route: 048
  4. LISINOPRIL [Concomitant]
     Dosage: 20 MG, 1X/DAY
  5. HYDROCHLOROTHIAZIDE WITH TRIAMTERENE [Concomitant]
     Indication: HYPERTENSION
     Dosage: UNK, 1X/DAY
  6. POTASSIUM [Concomitant]
     Dosage: 10 MEQ, 1X/DAY

REACTIONS (4)
  - Diabetes mellitus [Unknown]
  - Cataract [Unknown]
  - Weight decreased [Unknown]
  - Eye disorder [Unknown]
